FAERS Safety Report 7122994-6 (Version None)
Quarter: 2010Q4

REPORT INFORMATION
  Report Type: 
  Country: None (occurrence: None)
  Receive Date: 20101124
  Receipt Date: 20101112
  Transmission Date: 20110411
  Serious: Yes (Death, Hospitalization)
  Sender: FDA-Public Use
  Company Number: CA-CELGENEUS-028-21880-10110823

PATIENT
  Sex: Female

DRUGS (16)
  1. REVLIMID [Suspect]
     Route: 048
     Dates: end: 20101103
  2. SYNTHROID [Concomitant]
     Route: 065
  3. RABEPRAZOLE SODIUM [Concomitant]
     Route: 065
  4. ATORVASTATIN [Concomitant]
     Route: 065
  5. METFORMIN [Concomitant]
     Route: 065
  6. IMODIUM [Concomitant]
     Route: 065
  7. FLOVENT [Concomitant]
     Route: 065
  8. METOPROLOL SUCCINATE [Concomitant]
     Route: 065
  9. CA [Concomitant]
     Route: 065
  10. MAGNESIUM OXIDE [Concomitant]
     Route: 065
  11. TYLENOL #1 [Concomitant]
     Route: 065
  12. APO-SALVENT [Concomitant]
     Route: 065
  13. SPIRIVA [Concomitant]
     Route: 065
  14. ADVAIR [Concomitant]
     Route: 065
  15. GRAVOL TAB [Concomitant]
     Route: 065
  16. NEXIUM [Concomitant]
     Route: 065

REACTIONS (3)
  - CONTUSION [None]
  - DEATH [None]
  - PLATELET COUNT DECREASED [None]
